FAERS Safety Report 21044013 (Version 1)
Quarter: 2022Q3

REPORT INFORMATION
  Report Type: Spontaneous
  Country: US (occurrence: None)
  Receive Date: 20220702
  Receipt Date: 20220702
  Transmission Date: 20221027
  Serious: No
  Sender: FDA-Public Use
  Company Number: None

PATIENT
  Age: 73 Year
  Sex: Female
  Weight: 79.2 kg

DRUGS (8)
  1. ERYTHROMYCIN [Suspect]
     Active Substance: ERYTHROMYCIN
     Indication: Hordeolum
     Dosage: FREQUENCY : 3 TIMES A DAY;?
     Route: 047
     Dates: start: 20220629, end: 20220702
  2. Maxine [Concomitant]
  3. ROSUVASTATIN [Concomitant]
     Active Substance: ROSUVASTATIN
  4. ASPIRIN [Concomitant]
     Active Substance: ASPIRIN
  5. CITALOPRAM [Concomitant]
     Active Substance: CITALOPRAM HYDROBROMIDE
  6. DOXYCYCLINE [Concomitant]
     Active Substance: DOXYCYCLINE
  7. topical Di love Mac [Concomitant]
  8. Cetirazine [Concomitant]

REACTIONS (4)
  - Conjunctivitis [None]
  - Instillation site pain [None]
  - Eye pruritus [None]
  - Eyelids pruritus [None]

NARRATIVE: CASE EVENT DATE: 20220702
